FAERS Safety Report 9400295 (Version 1)
Quarter: 2013Q3

REPORT INFORMATION
  Report Type: Spontaneous
  Country: AU (occurrence: None)
  Receive Date: 20130708
  Receipt Date: 20130708
  Transmission Date: 20140515
  Serious: Yes (Death, Hospitalization)
  Sender: FDA-Public Use
  Company Number: 09-AUR-10437

PATIENT
  Age: 61 Year
  Sex: Female

DRUGS (5)
  1. METFORMIN [Suspect]
     Indication: PRODUCT USED FOR UNKNOWN INDICATION
  2. FRUSEMIDE [Suspect]
     Indication: PRODUCT USED FOR UNKNOWN INDICATION
  3. GLICLAZIDE (GLICLAZIDE) [Concomitant]
  4. CANDENSARTAN /HYDROCHLOROTHIAZIDE (CANDESARTAN W/HYDROCHLOROTHIAZIDE) [Concomitant]
  5. QUINAPRIL (QUINAPRIL) [Concomitant]

REACTIONS (7)
  - Dehydration [None]
  - Lactic acidosis [None]
  - Nausea [None]
  - Vomiting [None]
  - Diarrhoea [None]
  - Shock [None]
  - Renal failure acute [None]
